FAERS Safety Report 8621877-X (Version None)
Quarter: 2012Q3

REPORT INFORMATION
  Report Type: 
  Country: None (occurrence: None)
  Receive Date: 20120822
  Receipt Date: 20120822
  Transmission Date: 20120928
  Serious: No
  Sender: FDA-Public Use
  Company Number: None

PATIENT
  Age: 64 Year
  Sex: Female

DRUGS (2)
  1. TEMODAR [Suspect]
     Dosage: 100MG DAILY PO
     Route: 048
     Dates: start: 20120125
  2. TEMODAR [Suspect]
     Dosage: 140MG DAILY PO
     Route: 048
     Dates: start: 20120126

REACTIONS (1)
  - BRADYCARDIA [None]
